FAERS Safety Report 18835661 (Version 1)
Quarter: 2021Q1

REPORT INFORMATION
  Report Type: Spontaneous
  Country: US (occurrence: US)
  Receive Date: 20210203
  Receipt Date: 20210203
  Transmission Date: 20210419
  Serious: No
  Sender: FDA-Public Use
  Company Number: US-ALLERGAN-2001727US

PATIENT
  Sex: Female

DRUGS (1)
  1. BOTOX [Suspect]
     Active Substance: ONABOTULINUMTOXINA
     Indication: MIGRAINE
     Dosage: 200 UNITS, SINGLE
     Dates: start: 20191107, end: 20191107

REACTIONS (6)
  - Drug ineffective [Unknown]
  - Muscular weakness [Unknown]
  - Eyelid ptosis [Unknown]
  - Off label use [Unknown]
  - Facial paresis [Unknown]
  - Swelling face [Unknown]

NARRATIVE: CASE EVENT DATE: 20191107
